FAERS Safety Report 24262709 (Version 1)
Quarter: 2024Q3

REPORT INFORMATION
  Report Type: Spontaneous
  Country: US (occurrence: None)
  Receive Date: 20240827
  Receipt Date: 20240827
  Transmission Date: 20241016
  Serious: Yes (Death)
  Sender: Public
  Company Number: None

PATIENT
  Age: 85 Year
  Sex: Male
  Weight: 72.6 kg

DRUGS (2)
  1. DEVICE [Suspect]
     Active Substance: DEVICE
  2. HEPARIN [Concomitant]

REACTIONS (10)
  - Hyperhidrosis [None]
  - Agitation [None]
  - Vomiting [None]
  - Headache [None]
  - Malaise [None]
  - Blood pressure increased [None]
  - Heart rate increased [None]
  - Haematemesis [None]
  - Incorrect drug administration rate [None]
  - Mental status changes [None]

NARRATIVE: CASE EVENT DATE: 20240813
